FAERS Safety Report 13847292 (Version 1)
Quarter: 2017Q3

REPORT INFORMATION
  Report Type: Spontaneous
  Country: SI (occurrence: SI)
  Receive Date: 20170808
  Receipt Date: 20170808
  Transmission Date: 20171127
  Serious: Yes (Hospitalization)
  Sender: FDA-Public Use
  Company Number: PHHY2017SI113902

PATIENT
  Age: 50 Year
  Sex: Female

DRUGS (2)
  1. FUROSEMIDE. [Suspect]
     Active Substance: FUROSEMIDE
     Indication: CEREBRAL HAEMATOMA
     Route: 065
  2. MANNITOL. [Suspect]
     Active Substance: MANNITOL
     Indication: CEREBRAL HAEMATOMA
     Route: 065

REACTIONS (1)
  - Condition aggravated [Unknown]
